FAERS Safety Report 5211238-8 (Version None)
Quarter: 2006Q4

REPORT INFORMATION
  Report Type: 
  Country: None (occurrence: None)
  Receive Date: 20061114
  Receipt Date: 20060829
  Transmission Date: 20070319
  Serious: No
  Sender: FDA-Public Use
  Company Number: S06-USA-03490-01

PATIENT
  Age: 75 Year
  Sex: Female

DRUGS (10)
  1. NAMENDA [Suspect]
     Indication: DEMENTIA
     Dosage: 5 MG QD; PO
     Route: 048
     Dates: start: 20060824, end: 20060830
  2. NAMENDA [Suspect]
     Indication: DEMENTIA
     Dosage: 5 MG QD; PO
     Route: 048
     Dates: start: 20060908, end: 20060901
  3. NAMENDA [Suspect]
     Indication: DEMENTIA
     Dates: start: 20060901
  4. ARICEPT [Concomitant]
  5. ZOCOR [Concomitant]
  6. PLAVIX [Concomitant]
  7. SECTROL (ACEBUTOLOL) [Concomitant]
  8. NORVASC [Concomitant]
  9. FUROSEMIDE [Concomitant]
  10. VITAMINS NOS [Concomitant]

REACTIONS (6)
  - CONFUSIONAL STATE [None]
  - DIARRHOEA [None]
  - FATIGUE [None]
  - IRRITABILITY [None]
  - POLLAKIURIA [None]
  - URINARY TRACT INFECTION [None]
